FAERS Safety Report 4408353-5 (Version None)
Quarter: 2004Q3

REPORT INFORMATION
  Report Type: 
  Country: None (occurrence: None)
  Receive Date: 20040722
  Receipt Date: 20040709
  Transmission Date: 20050211
  Serious: Yes (Hospitalization)
  Sender: FDA-Public Use
  Company Number: PERI00204002312

PATIENT
  Age: 48 Year
  Sex: Female

DRUGS (3)
  1. COVERSYL (PERINDOPRIL) [Suspect]
     Indication: ESSENTIAL HYPERTENSION
     Dosage: 2 MG QD PO
     Route: 048
  2. PHENYTOIN SODIUM [Suspect]
     Indication: CONVULSION
     Dosage: 360 MG QD PO;500 MG ONCE IV
     Route: 048
     Dates: start: 20030521, end: 20030521
  3. PHENYTOIN SODIUM [Suspect]
     Indication: CONVULSION
     Dosage: 360 MG QD PO;500 MG ONCE IV
     Route: 048
     Dates: start: 20040205, end: 20040323

REACTIONS (3)
  - DRUG HYPERSENSITIVITY [None]
  - HEPATIC FUNCTION ABNORMAL [None]
  - PYREXIA [None]
